FAERS Safety Report 5936840-7 (Version None)
Quarter: 2008Q4

REPORT INFORMATION
  Report Type: 
  Country: None (occurrence: None)
  Receive Date: 20081029
  Receipt Date: 20081022
  Transmission Date: 20090506
  Serious: Yes (Other)
  Sender: FDA-Public Use
  Company Number: A-US2006-13748

PATIENT
  Age: 85 Year
  Sex: Female
  Weight: 59 kg

DRUGS (13)
  1. TRACLEER [Suspect]
     Indication: PULMONARY ARTERIAL HYPERTENSION
     Dosage: 125 MG,BID,ORAL
     Route: 048
     Dates: start: 20060115, end: 20061103
  2. LANOXIN [Concomitant]
  3. REVATIO [Concomitant]
  4. AMIODARONE HCL [Concomitant]
  5. CELEBREX [Concomitant]
  6. CALTRATE (VITAMIN D NOS, CALCIUM) [Concomitant]
  7. MULTIVITAMIN [Concomitant]
  8. LESCOL [Concomitant]
  9. TOPROL-XL [Concomitant]
  10. POTASSIUM CHLORIDE [Concomitant]
  11. LASIX [Concomitant]
  12. EVISTA [Concomitant]
  13. COUMADIN [Concomitant]

REACTIONS (1)
  - LEUKOPENIA [None]
